FAERS Safety Report 8868610 (Version 1)
Quarter: 2012Q4

REPORT INFORMATION
  Report Type: 
  Country: FR (occurrence: FR)
  Receive Date: 20121024
  Receipt Date: 20121024
  Transmission Date: 20130627
  Serious: Yes (Hospitalization)
  Sender: FDA-Public Use
  Company Number: FR-ASTRAZENECA-2012SE80589

PATIENT
  Age: 13609 Day
  Sex: Female

DRUGS (6)
  1. DIPRIVAN [Suspect]
     Indication: ANAESTHESIA
     Dosage: Once/Single administration
     Route: 042
     Dates: start: 20111017, end: 20111017
  2. ACTISKENAN [Suspect]
     Indication: POSTOPERATIVE ANALGESIA
     Route: 048
     Dates: start: 20111017, end: 20111020
  3. SUFENTA [Concomitant]
     Indication: ANAESTHESIA
     Dosage: Once/Single administration
     Route: 042
     Dates: start: 20111017, end: 20111017
  4. XYLOCAINE [Concomitant]
     Indication: ANAESTHESIA
     Dosage: Once/Single administration
     Route: 042
     Dates: start: 20111017, end: 20111017
  5. NIMBEX [Concomitant]
     Indication: ANAESTHESIA
     Dosage: Once/Single administration
     Route: 042
     Dates: start: 20111017, end: 20111017
  6. ACUPAN [Concomitant]
     Route: 042

REACTIONS (4)
  - Urticaria [Recovered/Resolved]
  - Drug hypersensitivity [Unknown]
  - Blood pressure decreased [Unknown]
  - Asthma [Unknown]
